FAERS Safety Report 8473746-6 (Version None)
Quarter: 2012Q2

REPORT INFORMATION
  Report Type: 
  Country: None (occurrence: None)
  Receive Date: 20120628
  Receipt Date: 20111213
  Transmission Date: 20120825
  Serious: Yes (Other)
  Sender: FDA-Public Use
  Company Number: US-MYLANLABS-2011S1021402

PATIENT
  Age: 61 Year
  Sex: Female
  Weight: 79.7 kg

DRUGS (10)
  1. VITAMIN D [Concomitant]
  2. SIMVASTATIN [Concomitant]
  3. CLOZAPINE [Suspect]
     Indication: SCHIZOAFFECTIVE DISORDER BIPOLAR TYPE
     Route: 048
     Dates: start: 20110826, end: 20111013
  4. DEPAKOTE ER [Concomitant]
     Route: 048
  5. BENZTROPINE MESYLATE [Concomitant]
     Route: 048
  6. RISPERDAL [Concomitant]
  7. VITAMIN D [Concomitant]
  8. METFORMIN HCL [Concomitant]
  9. CALCIUM + VITAMIN D /01483701/ [Concomitant]
     Dosage: 500/200
  10. COGENTIN [Concomitant]

REACTIONS (2)
  - GRANULOCYTOPENIA [None]
  - LEUKOPENIA [None]
